FAERS Safety Report 15879746 (Version 1)
Quarter: 2019Q1

REPORT INFORMATION
  Report Type: Spontaneous
  Country: US (occurrence: US)
  Receive Date: 20190127
  Receipt Date: 20190127
  Transmission Date: 20190417
  Serious: Yes (Other)
  Sender: FDA-Public Use
  Company Number: None

PATIENT
  Age: 44 Year
  Sex: Female
  Weight: 73.35 kg

DRUGS (9)
  1. TROKENDI [Concomitant]
     Active Substance: TOPIRAMATE
  2. MUCINEX D [Concomitant]
     Active Substance: GUAIFENESIN\PSEUDOEPHEDRINE HYDROCHLORIDE
  3. ZOLOFT [Concomitant]
     Active Substance: SERTRALINE HYDROCHLORIDE
  4. PROPRANOLOL [Concomitant]
     Active Substance: PROPRANOLOL HYDROCHLORIDE
  5. TIZANIDINE. [Concomitant]
     Active Substance: TIZANIDINE
  6. BENADRYL [Concomitant]
     Active Substance: DIPHENHYDRAMINE HYDROCHLORIDE
  7. AIMOVIG [Suspect]
     Active Substance: ERENUMAB-AOOE
     Indication: MIGRAINE PROPHYLAXIS
     Dosage: ?          QUANTITY:1 INJECTION(S);OTHER FREQUENCY:EVERY 28 DAYS;OTHER ROUTE:INJECTED SUBCUTANEOUSLY INTO THE THIGH?
     Dates: start: 20190121, end: 20190121
  8. SYNTHROID [Concomitant]
     Active Substance: LEVOTHYROXINE SODIUM
  9. CELESTINE [Concomitant]
     Active Substance: LORATADINE

REACTIONS (8)
  - Skin disorder [None]
  - Urticaria [None]
  - Pharyngeal oedema [None]
  - Cough [None]
  - Injection site swelling [None]
  - Injection site erythema [None]
  - Injection site pruritus [None]
  - Erythema [None]

NARRATIVE: CASE EVENT DATE: 20190122
